FAERS Safety Report 13730226 (Version 2)
Quarter: 2020Q1

REPORT INFORMATION
  Report Type: Spontaneous
  Country: US (occurrence: US)
  Receive Date: 20170707
  Receipt Date: 20200218
  Transmission Date: 20200409
  Serious: Yes (Hospitalization, Other)
  Sender: FDA-Public Use
  Company Number: US-JNJFOC-20170223776

PATIENT
  Age: 51 Year
  Sex: Female
  Weight: 63.87 kg

DRUGS (6)
  1. XARELTO [Suspect]
     Active Substance: RIVAROXABAN
     Indication: DEEP VEIN THROMBOSIS
     Dosage: VARYING DOSES OF 15 MG AND 20 MG
     Route: 048
     Dates: start: 201501
  2. XARELTO [Suspect]
     Active Substance: RIVAROXABAN
     Indication: HYPERCOAGULATION
  3. XARELTO [Suspect]
     Active Substance: RIVAROXABAN
     Indication: THROMBOSIS PROPHYLAXIS
     Dosage: 15MG AND 20MG
     Route: 048
     Dates: start: 201511, end: 20160425
  4. XARELTO [Suspect]
     Active Substance: RIVAROXABAN
     Indication: AORTIC THROMBOSIS
  5. XARELTO [Suspect]
     Active Substance: RIVAROXABAN
     Indication: MESENTERIC ARTERY THROMBOSIS
  6. ASPIRIN                            /00002701/ [Suspect]
     Active Substance: ASPIRIN
     Indication: CEREBRAL INFARCTION
     Route: 065

REACTIONS (4)
  - Vaginal haemorrhage [Recovering/Resolving]
  - Anal haemorrhage [Unknown]
  - Haemorrhage urinary tract [Unknown]
  - Epistaxis [Unknown]

NARRATIVE: CASE EVENT DATE: 20150402
